FAERS Safety Report 4929046-1 (Version None)
Quarter: 2006Q1

REPORT INFORMATION
  Report Type: 
  Country: None (occurrence: None)
  Receive Date: 20060301
  Receipt Date: 20050315
  Transmission Date: 20060701
  Serious: Yes (Other)
  Sender: FDA-Public Use
  Company Number: US-MERCK-0503USA03255

PATIENT
  Age: 63 Year
  Sex: Female
  Weight: 68 kg

DRUGS (11)
  1. VIOXX [Suspect]
     Route: 048
     Dates: start: 20020401, end: 20031226
  2. LIPITOR [Concomitant]
     Route: 048
  3. PREMARIN [Concomitant]
     Route: 048
  4. PREVACID [Concomitant]
     Route: 048
  5. TOPAMAX [Concomitant]
     Route: 048
  6. LEVOXYL [Concomitant]
     Route: 048
  7. ALPRAZOLAM [Concomitant]
     Route: 048
  8. FAMOTIDINE [Concomitant]
     Route: 048
  9. NORVASC [Concomitant]
     Route: 048
  10. ADVAIR DISKUS 100/50 [Concomitant]
     Route: 055
  11. ADVIL [Concomitant]
     Route: 048

REACTIONS (16)
  - ANXIETY [None]
  - BLOOD PRESSURE INADEQUATELY CONTROLLED [None]
  - CARDIAC MURMUR [None]
  - CEREBROVASCULAR ACCIDENT [None]
  - CHEST PAIN [None]
  - COUGH [None]
  - DEPRESSION [None]
  - DIABETES MELLITUS [None]
  - ELECTROCARDIOGRAM ABNORMAL [None]
  - GASTROOESOPHAGEAL REFLUX DISEASE [None]
  - HYPOTHYROIDISM [None]
  - LARYNGITIS [None]
  - OEDEMA PERIPHERAL [None]
  - RENAL ARTERY STENOSIS [None]
  - VENTRICULAR HYPERTROPHY [None]
  - VERTIGO [None]
